FAERS Safety Report 25508976 (Version 1)
Quarter: 2025Q3

REPORT INFORMATION
  Report Type: Spontaneous
  Country: TR (occurrence: TR)
  Receive Date: 20250703
  Receipt Date: 20250703
  Transmission Date: 20251021
  Serious: Yes (Other)
  Sender: ASTELLAS
  Company Number: TR-ASTELLAS-2022US009620

PATIENT
  Age: 60 Year
  Sex: Male

DRUGS (1)
  1. XTANDI [Suspect]
     Active Substance: ENZALUTAMIDE
     Indication: Product used for unknown indication
     Route: 065
     Dates: start: 20200520

REACTIONS (2)
  - Malignant neoplasm progression [Unknown]
  - Bone pain [Unknown]

NARRATIVE: CASE EVENT DATE: 20201125
